FAERS Safety Report 9815623 (Version 4)
Quarter: 2016Q2

REPORT INFORMATION
  Report Type: Spontaneous
  Country: US (occurrence: US)
  Receive Date: 20140114
  Receipt Date: 20160428
  Transmission Date: 20160815
  Serious: Yes (Disabling, Other)
  Sender: FDA-Public Use
  Company Number: US-009507513-1401USA001447

PATIENT
  Sex: Male

DRUGS (2)
  1. IBUPROFEN. [Concomitant]
     Active Substance: IBUPROFEN
     Indication: PAIN
     Dosage: UNK
     Dates: start: 1999
  2. PROPECIA [Suspect]
     Active Substance: FINASTERIDE
     Indication: ALOPECIA
     Dosage: 1 MG, QD
     Route: 048
     Dates: start: 200103, end: 2003

REACTIONS (19)
  - Suicide attempt [Not Recovered/Not Resolved]
  - Major depression [Not Recovered/Not Resolved]
  - Erectile dysfunction [Unknown]
  - Anxiety [Not Recovered/Not Resolved]
  - Fatigue [Unknown]
  - Peripheral swelling [Unknown]
  - Arthralgia [Unknown]
  - Blood testosterone decreased [Unknown]
  - Back pain [Unknown]
  - Endocrine disorder [Unknown]
  - Weight increased [Unknown]
  - Joint swelling [Unknown]
  - Psychotic disorder [Not Recovered/Not Resolved]
  - Brain injury [Unknown]
  - Suicidal ideation [Not Recovered/Not Resolved]
  - Soft tissue injury [Unknown]
  - Sleep apnoea syndrome [Unknown]
  - Dyspnoea [Unknown]
  - Sexual dysfunction [Unknown]

NARRATIVE: CASE EVENT DATE: 2001
